FAERS Safety Report 17148470 (Version 1)
Quarter: 2019Q4

REPORT INFORMATION
  Report Type: Spontaneous
  Country: JP (occurrence: JP)
  Receive Date: 20191212
  Receipt Date: 20191212
  Transmission Date: 20200122
  Serious: Yes (Death, Other)
  Sender: FDA-Public Use
  Company Number: JP-BRISTOL-MYERS SQUIBB COMPANY-BMS-2019-111028

PATIENT
  Age: 9 Decade
  Sex: Female

DRUGS (1)
  1. HYDREA [Suspect]
     Active Substance: HYDROXYUREA
     Indication: CHRONIC MYELOID LEUKAEMIA
     Dosage: 500 MILLIGRAM, QD
     Route: 048

REACTIONS (2)
  - Malignant neoplasm progression [Fatal]
  - Dysphagia [Fatal]

NARRATIVE: CASE EVENT DATE: 20191118
